FAERS Safety Report 6511950-4 (Version None)
Quarter: 2009Q4

REPORT INFORMATION
  Report Type: 
  Country: None (occurrence: None)
  Receive Date: 20091222
  Receipt Date: 20090722
  Transmission Date: 20100525
  Serious: No
  Sender: FDA-Public Use
  Company Number: US-ASTRAZENECA-2009UW15734

PATIENT
  Age: 78 Year
  Sex: Female
  Weight: 38.1 kg

DRUGS (4)
  1. CRESTOR [Suspect]
     Indication: BLOOD CHOLESTEROL
     Route: 048
     Dates: start: 20090602, end: 20090610
  2. ATENOLOL [Concomitant]
  3. HYDROCHLOROTHIAZIDE [Concomitant]
     Indication: BLOOD PRESSURE
  4. LEVOXYL [Concomitant]

REACTIONS (4)
  - BACK PAIN [None]
  - DYSPNOEA [None]
  - HEADACHE [None]
  - PAIN IN EXTREMITY [None]
